FAERS Safety Report 7179210-9 (Version None)
Quarter: 2010Q4

REPORT INFORMATION
  Report Type: 
  Country: None (occurrence: None)
  Receive Date: 20101221
  Receipt Date: 20101214
  Transmission Date: 20110411
  Serious: Yes (Other)
  Sender: FDA-Public Use
  Company Number: FR-SANOFI-AVENTIS-2010SA071148

PATIENT
  Age: 83 Year
  Sex: Male
  Weight: 90 kg

DRUGS (17)
  1. MULTAQ [Suspect]
     Indication: ATRIAL FIBRILLATION
     Route: 048
     Dates: start: 20101120, end: 20101125
  2. SINTROM [Suspect]
     Dosage: 1 MG EVEN DATE AND 2 MG UNEVEN DATE
     Route: 048
     Dates: end: 20101123
  3. DIGOXINE [Concomitant]
     Route: 048
     Dates: end: 20101118
  4. SOTALOL [Concomitant]
     Indication: TACHYCARDIA
     Route: 048
     Dates: start: 20050101, end: 20101118
  5. SOTALOL [Concomitant]
     Indication: EXTRASYSTOLES
     Route: 048
     Dates: start: 20050101, end: 20101118
  6. AMLOR [Concomitant]
     Route: 048
     Dates: start: 19940101, end: 20101101
  7. AMLOR [Concomitant]
     Route: 048
     Dates: start: 19940101, end: 20101101
  8. ZESTRIL [Concomitant]
     Route: 048
     Dates: start: 19940101, end: 20101101
  9. ZESTRIL [Concomitant]
     Route: 048
     Dates: start: 19940101, end: 20101101
  10. AMAREL [Concomitant]
     Indication: TYPE 2 DIABETES MELLITUS
     Route: 048
     Dates: start: 20020101, end: 20101101
  11. ASPIRIN [Concomitant]
     Dosage: 80 MG EVEN DATE AND 160 MG UNEVEN DATE
     Route: 048
     Dates: end: 20101101
  12. ASPIRIN [Concomitant]
     Dosage: 80 MG EVEN DATE AND 160 MG UNEVEN DATE
     Route: 048
     Dates: end: 20101101
  13. MOPRAL [Concomitant]
     Route: 048
     Dates: start: 19940101, end: 20101101
  14. TAMSULOSIN HYDROCHLORIDE [Concomitant]
     Route: 048
     Dates: start: 20080101, end: 20101101
  15. TEMESTA [Concomitant]
     Route: 048
     Dates: start: 19940101, end: 20101101
  16. MULTI-VITAMINS [Concomitant]
  17. CLONIDINE HCL [Concomitant]
     Route: 048
     Dates: start: 19920101, end: 20101101

REACTIONS (5)
  - CHROMATOPSIA [None]
  - HAEMATOMA [None]
  - HEADACHE [None]
  - INTERNATIONAL NORMALISED RATIO INCREASED [None]
  - PROTHROMBIN TIME PROLONGED [None]
